FAERS Safety Report 9711006 (Version 1)
Quarter: 2013Q4

REPORT INFORMATION
  Report Type: Spontaneous
  Country: US (occurrence: US)
  Receive Date: 20131126
  Receipt Date: 20131126
  Transmission Date: 20140711
  Serious: Yes (Life-Threatening)
  Sender: FDA-Public Use
  Company Number: US-ROXANE LABORATORIES, INC.-2013-RO-01855RO

PATIENT
  Age: 58 Year
  Sex: Female

DRUGS (2)
  1. AMLODIPINE [Suspect]
  2. ZOLPIDEM [Suspect]

REACTIONS (3)
  - Toxicity to various agents [Recovered/Resolved]
  - Shock [Recovered/Resolved]
  - Overdose [Recovered/Resolved]
